FAERS Safety Report 7637600-1 (Version None)
Quarter: 2011Q3

REPORT INFORMATION
  Report Type: 
  Country: None (occurrence: None)
  Receive Date: 20110726
  Receipt Date: 20110722
  Transmission Date: 20111222
  Serious: Yes (Death, Other)
  Sender: FDA-Public Use
  Company Number: PHHY2011GB65964

PATIENT

DRUGS (8)
  1. ONDANSETRON [Concomitant]
     Indication: ANTIEMETIC SUPPORTIVE CARE
     Dosage: 8 MG, (2 DF/DAY)
     Dates: start: 20110510, end: 20110512
  2. XELODA [Suspect]
     Dosage: 1700 MG / 3 WEEKS
     Route: 048
     Dates: start: 20110316, end: 20110427
  3. AVASTIN [Suspect]
     Indication: RECTAL CANCER METASTATIC
     Dosage: 475 MG / 3WEEKS
     Route: 042
     Dates: start: 20110406, end: 20110427
  4. OMEPRAZOLE [Concomitant]
     Indication: HYPERCHLORHYDRIA
     Dosage: 20 MG/DAY
     Route: 048
     Dates: start: 20110509, end: 20110511
  5. OXALIPLATIN [Suspect]
     Indication: RECTAL CANCER METASTATIC
     Dosage: 220 MG/3WEEKS
     Route: 042
     Dates: start: 20110316, end: 20110427
  6. DEXAMETHASONE [Concomitant]
  7. PROCHLORPERAZINE [Concomitant]
     Indication: ANTIEMETIC SUPPORTIVE CARE
     Dosage: UNK UKN, UNK
     Dates: start: 20110510, end: 20110512
  8. CYCLIZINE [Concomitant]
     Indication: ANTIEMETIC SUPPORTIVE CARE
     Dosage: 50 MG, (THREE TIMES PER DAY)
     Dates: start: 20110510, end: 20110512

REACTIONS (2)
  - CEREBROVASCULAR ACCIDENT [None]
  - ORAL CANDIDIASIS [None]
